FAERS Safety Report 8805851 (Version 1)
Quarter: 2012Q4

REPORT INFORMATION
  Report Type: Spontaneous
  Country: US (occurrence: None)
  Receive Date: 20120919
  Receipt Date: 20120919
  Transmission Date: 20130627
  Serious: Yes (Disabling, Other)
  Sender: FDA-Public Use
  Company Number: None

PATIENT
  Age: 55 Year
  Sex: Female
  Weight: 97.52 kg

DRUGS (1)
  1. ACTONEL [Suspect]
     Indication: OSTEOPENIA
     Dosage: 1 TABLET MONTHLY
     Dates: start: 20110706, end: 20120407

REACTIONS (10)
  - Fall [None]
  - Lumbar vertebral fracture [None]
  - Compression fracture [None]
  - Arthralgia [None]
  - Myalgia [None]
  - Muscular weakness [None]
  - Ligament rupture [None]
  - Joint injury [None]
  - Humerus fracture [None]
  - Upper limb fracture [None]
